FAERS Safety Report 14694177 (Version 2)
Quarter: 2018Q2

REPORT INFORMATION
  Report Type: Spontaneous
  Country: SE (occurrence: SE)
  Receive Date: 20180329
  Receipt Date: 20180409
  Transmission Date: 20180711
  Serious: Yes (Hospitalization, Other)
  Sender: FDA-Public Use
  Company Number: SE-BAYER-2018-054261

PATIENT
  Sex: Female

DRUGS (2)
  1. MABTHERA [Concomitant]
     Active Substance: RITUXIMAB
     Indication: NERVOUS SYSTEM DISORDER
  2. LEVONORGESTREL IUS [UNKNOWN] [Suspect]
     Active Substance: LEVONORGESTREL
     Dosage: UNK
     Route: 015
     Dates: start: 20161020, end: 20161101

REACTIONS (6)
  - Genital haemorrhage [None]
  - Pyrexia [None]
  - Chills [None]
  - Abdominal pain lower [None]
  - Abdominal infection [None]
  - Nasopharyngitis [None]

NARRATIVE: CASE EVENT DATE: 2016
